FAERS Safety Report 4954547-X (Version None)
Quarter: 2006Q1

REPORT INFORMATION
  Report Type: 
  Country: None (occurrence: None)
  Receive Date: 20060322
  Receipt Date: 20060313
  Transmission Date: 20060701
  Serious: Yes (Other)
  Sender: FDA-Public Use
  Company Number: 2006-03-0689

PATIENT
  Age: 77 Year
  Sex: Female

DRUGS (1)
  1. VIRAFERONPEG [Suspect]
     Indication: HEPATITIS C
     Dosage: 50 UG QWK SUBCUTANEOUS
     Route: 058
     Dates: start: 20050901

REACTIONS (2)
  - CONDITION AGGRAVATED [None]
  - HYPERTENSION [None]
